FAERS Safety Report 7439305-9 (Version None)
Quarter: 2011Q2

REPORT INFORMATION
  Report Type: 
  Country: None (occurrence: None)
  Receive Date: 20110427
  Receipt Date: 20110425
  Transmission Date: 20111010
  Serious: No
  Sender: FDA-Public Use
  Company Number: US-PFIZER INC-2011088999

PATIENT
  Sex: Female
  Weight: 68.027 kg

DRUGS (3)
  1. ADVIL COLD AND SINUS [Suspect]
     Indication: MIGRAINE
  2. INDERAL LA [Concomitant]
     Indication: MIGRAINE
     Dosage: 80 MG, 1X/DAY
     Route: 048
  3. ADVIL COLD AND SINUS [Suspect]
     Indication: SINUS CONGESTION
     Dosage: UNK
     Route: 048
     Dates: start: 20080101

REACTIONS (1)
  - DRUG INEFFECTIVE [None]
